FAERS Safety Report 23670027 (Version 2)
Quarter: 2024Q2

REPORT INFORMATION
  Report Type: Spontaneous
  Country: GB (occurrence: GB)
  Receive Date: 20240325
  Receipt Date: 20240520
  Transmission Date: 20240716
  Serious: Yes (Death, Hospitalization, Other)
  Sender: FDA-Public Use
  Company Number: GB-BRISTOL-MYERS SQUIBB COMPANY-2023-167889

PATIENT
  Age: 66 Year
  Sex: Female

DRUGS (19)
  1. METHOTREXATE [Suspect]
     Active Substance: METHOTREXATE
     Indication: Rheumatoid arthritis
     Dosage: FREQUENCY:  WEEKLY
     Route: 050
     Dates: end: 20231011
  2. ORENCIA [Suspect]
     Active Substance: ABATACEPT
     Indication: Rheumatoid arthritis
     Dosage: 125 MG, QW
     Route: 050
     Dates: start: 201503
  3. ORENCIA [Suspect]
     Active Substance: ABATACEPT
     Dosage: 125 MG
     Route: 050
     Dates: start: 20210317, end: 20231011
  4. ORENCIA [Suspect]
     Active Substance: ABATACEPT
     Dosage: UNK
     Route: 065
     Dates: start: 201905
  5. APIXABAN [Concomitant]
     Active Substance: APIXABAN
     Indication: Atrial fibrillation
     Dosage: 5 MG
     Route: 050
     Dates: start: 20230529
  6. BACLOFEN [Concomitant]
     Active Substance: BACLOFEN
     Indication: Myoclonus
     Dosage: 20 MG
     Route: 050
  7. BACLOFEN [Concomitant]
     Active Substance: BACLOFEN
     Dosage: 20 MG
     Route: 050
  8. BACLOFEN [Concomitant]
     Active Substance: BACLOFEN
     Dosage: 20 MG
     Route: 050
  9. BACLOFEN [Concomitant]
     Active Substance: BACLOFEN
     Route: 050
  10. CARBOCYSTEINE [Concomitant]
     Active Substance: CARBOCYSTEINE
     Indication: Chest discomfort
     Dosage: 750 MG
     Route: 050
  11. CARBOCYSTEINE [Concomitant]
     Active Substance: CARBOCYSTEINE
     Dosage: 750 MG
     Route: 050
  12. CARBOCYSTEINE [Concomitant]
     Active Substance: CARBOCYSTEINE
     Dosage: 750 MG
     Route: 050
  13. CARBOCYSTEINE [Concomitant]
     Active Substance: CARBOCYSTEINE
     Route: 050
  14. CO-DYDRAMOL [Concomitant]
     Active Substance: ACETAMINOPHEN\DIHYDROCODEINE
     Indication: Product used for unknown indication
     Dosage: 2-4 TABS
     Route: 050
  15. FUROSEMIDE [Concomitant]
     Active Substance: FUROSEMIDE
     Indication: Product used for unknown indication
     Dosage: UNK
     Route: 065
  16. GABAPENTIN [Concomitant]
     Active Substance: GABAPENTIN
     Indication: Pain
     Dosage: 300 MG
     Route: 050
  17. NAPROXEN [Concomitant]
     Active Substance: NAPROXEN
     Indication: Product used for unknown indication
     Dosage: UNK
     Route: 065
  18. OMEPRAZOLE [Concomitant]
     Active Substance: DONEPEZIL HYDROCHLORIDE\OMEPRAZOLE\OMEPRAZOLE MAGNESIUM
     Indication: Dyspepsia
     Dosage: 20 MG
     Route: 050
     Dates: start: 20231221
  19. THEICAL D3 [Concomitant]
     Indication: Product used for unknown indication
     Dosage: DOSE 2 TABLET INDICATION: BASE HANDLE.; ;
     Route: 050

REACTIONS (5)
  - Multiple organ dysfunction syndrome [Fatal]
  - Sepsis [Fatal]
  - Lower respiratory tract infection [Unknown]
  - Urinary tract infection [Recovered/Resolved]
  - Bacterial infection [Unknown]

NARRATIVE: CASE EVENT DATE: 20231011
